FAERS Safety Report 15962889 (Version 1)
Quarter: 2019Q1

REPORT INFORMATION
  Report Type: Spontaneous
  Country: MT (occurrence: MT)
  Receive Date: 20190214
  Receipt Date: 20190214
  Transmission Date: 20190417
  Serious: Yes (Disabling, Other)
  Sender: FDA-Public Use
  Company Number: MT-JNJFOC-20190208676

PATIENT
  Age: 20 Year
  Sex: Male

DRUGS (4)
  1. RISPERIDONE. [Suspect]
     Active Substance: RISPERIDONE
     Indication: AUTISM SPECTRUM DISORDER
     Dosage: 1ML-1ML-2MLS
     Route: 048
     Dates: start: 20151025, end: 20151027
  2. AFEKSIN [Concomitant]
     Indication: AUTISM SPECTRUM DISORDER
     Dosage: 1-0-0
     Route: 065
     Dates: start: 20150903
  3. VALPROATE [Concomitant]
     Active Substance: VALPROIC ACID
     Indication: EPILEPSY
     Dosage: 5 MILLILITERS-0-5 MILLILITERS
     Route: 065
     Dates: start: 20120101
  4. ATIVAN [Concomitant]
     Active Substance: LORAZEPAM
     Indication: ABNORMAL BEHAVIOUR
     Dosage: 1-0-1
     Route: 065
     Dates: start: 20150903

REACTIONS (4)
  - Aggression [Recovered/Resolved]
  - Inappropriate schedule of product administration [Unknown]
  - Off label use [Unknown]
  - Psychomotor hyperactivity [Recovered/Resolved]

NARRATIVE: CASE EVENT DATE: 20151025
